FAERS Safety Report 7505603-3 (Version None)
Quarter: 2011Q2

REPORT INFORMATION
  Report Type: 
  Country: None (occurrence: None)
  Receive Date: 20110526
  Receipt Date: 20110524
  Transmission Date: 20111010
  Serious: Yes (Death)
  Sender: FDA-Public Use
  Company Number: JP-PFIZER INC-2011110931

PATIENT
  Age: 22 Year
  Sex: Male
  Weight: 42 kg

DRUGS (7)
  1. FLOLAN [Concomitant]
     Indication: PULMONARY HYPERTENSION
     Dosage: UNK
     Route: 042
  2. TRACLEER [Concomitant]
     Indication: PULMONARY HYPERTENSION
     Dosage: UNK
     Route: 048
  3. PERSANTIN [Concomitant]
     Indication: CARDIAC FAILURE
     Dosage: UNK
     Route: 048
  4. SILDENAFIL CITRATE [Suspect]
     Indication: PULMONARY ARTERIAL HYPERTENSION
     Dosage: 10 MG, 3X/DAY
     Route: 048
     Dates: start: 20080606
  5. WARFARIN [Concomitant]
     Indication: ANTICOAGULANT THERAPY
     Dosage: UNK
     Route: 048
  6. ALLEGRA [Concomitant]
     Indication: HYPERSENSITIVITY
     Dosage: UNK
     Route: 048
     Dates: start: 20081028
  7. RIZABEN [Concomitant]
     Indication: WOUND
     Dosage: UNK
     Route: 048

REACTIONS (1)
  - SUDDEN DEATH [None]
